FAERS Safety Report 22178908 (Version 1)
Quarter: 2023Q2

REPORT INFORMATION
  Report Type: Spontaneous
  Country: US (occurrence: US)
  Receive Date: 20230406
  Receipt Date: 20230406
  Transmission Date: 20230721
  Serious: No
  Sender: FDA-Public Use
  Company Number: US-JNJFOC-20230400089

PATIENT
  Sex: Male

DRUGS (2)
  1. XARELTO [Suspect]
     Active Substance: RIVAROXABAN
     Indication: Atrial fibrillation
     Dosage: AFTER THE EVENING MEAL
     Route: 048
     Dates: start: 2022
  2. XARELTO [Suspect]
     Active Substance: RIVAROXABAN
     Indication: Cerebrovascular accident prophylaxis

REACTIONS (4)
  - Dysphonia [Unknown]
  - Rhinorrhoea [Unknown]
  - Gastrooesophageal reflux disease [Unknown]
  - Epistaxis [Unknown]
